FAERS Safety Report 9024750 (Version 5)
Quarter: 2014Q1

REPORT INFORMATION
  Report Type: Spontaneous
  Country: US (occurrence: None)
  Receive Date: 20121231
  Receipt Date: 20140116
  Transmission Date: 20141002
  Serious: Yes (Other)
  Sender: FDA-Public Use
  Company Number: ADR-2012-02239

PATIENT
  Sex: Male

DRUGS (7)
  1. LIORESAL [Suspect]
     Indication: MUSCLE SPASTICITY
     Route: 037
  2. DEPAKOTE [Concomitant]
  3. OXYBUTYNIN [Concomitant]
  4. VITAMIN D [Concomitant]
  5. CIALIS [Concomitant]
  6. ORAL BACLOFEN [Concomitant]
  7. ORAL CLONAZEPAM [Concomitant]

REACTIONS (17)
  - Asthenia [None]
  - Musculoskeletal disorder [None]
  - Myelopathy [None]
  - Spinal cord disorder [None]
  - Atrophy [None]
  - Spinal cord oedema [None]
  - Gait disturbance [None]
  - Dysstasia [None]
  - Hypertonia [None]
  - Muscular weakness [None]
  - Dysarthria [None]
  - Paraplegia [None]
  - Syringomyelia [None]
  - Hypersensitivity [None]
  - Disease progression [None]
  - Spinal myelogram abnormal [None]
  - Weight bearing difficulty [None]
